FAERS Safety Report 12337711 (Version 1)
Quarter: 2016Q2

REPORT INFORMATION
  Report Type: Spontaneous
  Country: US (occurrence: None)
  Receive Date: 20160504
  Receipt Date: 20160504
  Transmission Date: 20160815
  Serious: No
  Sender: FDA-Public Use
  Company Number: None

PATIENT

DRUGS (1)
  1. PHYTONADIONE, 5ML [Suspect]
     Active Substance: PHYTONADIONE

REACTIONS (1)
  - Product label issue [None]

NARRATIVE: CASE EVENT DATE: 20160503
